FAERS Safety Report 10067275 (Version 2)
Quarter: 2014Q2

REPORT INFORMATION
  Report Type: Spontaneous
  Country: GB (occurrence: None)
  Receive Date: 20140407
  Receipt Date: 20140415
  Transmission Date: 20141212
  Serious: Yes (Death)
  Sender: FDA-Public Use
  Company Number: 2266025

PATIENT
  Sex: 0

DRUGS (4)
  1. CARBOPLATIN [Suspect]
     Indication: CHEMOTHERAPY
  2. ETOPOSIDE [Suspect]
     Indication: CHEMOTHERAPY
     Dates: start: 20140312
  3. SODIUM CHLORIDE [Suspect]
     Indication: MEDICATION DILUTION
     Dates: start: 20140312
  4. GLUCOSE [Suspect]
     Indication: MEDICATION DILUTION

REACTIONS (1)
  - Death [None]
